FAERS Safety Report 6174721-7 (Version None)
Quarter: 2009Q2

REPORT INFORMATION
  Report Type: 
  Country: None (occurrence: None)
  Receive Date: 20090430
  Receipt Date: 20081111
  Transmission Date: 20091009
  Serious: No
  Sender: FDA-Public Use
  Company Number: US-ASTRAZENECA-2008UW18050

PATIENT
  Age: 78 Year
  Sex: Female
  Weight: 73.5 kg

DRUGS (5)
  1. NEXIUM [Suspect]
     Indication: BARRETT'S OESOPHAGUS
     Dosage: 20 MG
     Route: 048
     Dates: start: 20080101, end: 20080828
  2. THYROID TAB [Concomitant]
  3. PREMARIN [Concomitant]
  4. VITAMINS [Concomitant]
  5. STEROID [Concomitant]

REACTIONS (3)
  - APHONIA [None]
  - PHOTOSENSITIVITY REACTION [None]
  - PIGMENTATION DISORDER [None]
